FAERS Safety Report 23513597 (Version 1)
Quarter: 2024Q1

REPORT INFORMATION
  Report Type: Spontaneous
  Country: CN (occurrence: None)
  Receive Date: 20240212
  Receipt Date: 20240212
  Transmission Date: 20240410
  Serious: Yes (Hospitalization, Other)
  Sender: FDA-Public Use
  Company Number: 2024A032539

PATIENT
  Age: 28382 Day
  Sex: Female
  Weight: 73 kg

DRUGS (3)
  1. DAPAGLIFLOZIN [Suspect]
     Active Substance: DAPAGLIFLOZIN
     Indication: Diabetes mellitus
     Route: 048
     Dates: start: 20231201, end: 20240201
  2. METFORMIN HYDROCHLORIDE [Suspect]
     Active Substance: METFORMIN HYDROCHLORIDE
     Indication: Diabetes mellitus
     Route: 048
     Dates: start: 20231201, end: 20240201
  3. ACARBOSE [Suspect]
     Active Substance: ACARBOSE
     Indication: Diabetes mellitus
     Route: 048
     Dates: start: 20231201, end: 20240201

REACTIONS (3)
  - Hypoglycaemic coma [Recovered/Resolved]
  - Cerebral atrophy [Unknown]
  - Lacunar infarction [Unknown]

NARRATIVE: CASE EVENT DATE: 20240201
